FAERS Safety Report 4487761-0 (Version None)
Quarter: 2004Q4

REPORT INFORMATION
  Report Type: 
  Country: None (occurrence: None)
  Receive Date: 20041028
  Receipt Date: 20041022
  Transmission Date: 20050328
  Serious: Yes (Hospitalization)
  Sender: FDA-Public Use
  Company Number: 200413185EU

PATIENT
  Age: 55 Year
  Sex: Male

DRUGS (2)
  1. SEGURIL [Suspect]
     Route: 048
     Dates: end: 20031216
  2. ALDACTONE [Suspect]
     Route: 048
     Dates: end: 20031216

REACTIONS (2)
  - GASTROINTESTINAL HAEMORRHAGE [None]
  - RENAL FAILURE ACUTE [None]
